FAERS Safety Report 4302441-X (Version None)
Quarter: 2004Q1

REPORT INFORMATION
  Report Type: 
  Country: None (occurrence: None)
  Receive Date: 20040224
  Receipt Date: 20040108
  Transmission Date: 20041129
  Serious: Yes (Hospitalization)
  Sender: FDA-Public Use
  Company Number: 200410185GDDC

PATIENT
  Age: 70 Year
  Sex: Female

DRUGS (2)
  1. TAXOTERE [Suspect]
     Indication: BREAST CANCER METASTATIC
     Route: 042
     Dates: start: 20030814, end: 20031127
  2. NAVELBINE [Suspect]
     Indication: BREAST CANCER METASTATIC
     Route: 042
     Dates: start: 20030814, end: 20031127

REACTIONS (5)
  - GLUCOSE TOLERANCE IMPAIRED [None]
  - INFLAMMATION [None]
  - LUNG DISORDER [None]
  - PNEUMONITIS [None]
  - SYNCOPE [None]
